FAERS Safety Report 21551282 (Version 2)
Quarter: 2022Q4

REPORT INFORMATION
  Report Type: Spontaneous
  Country: DE (occurrence: DE)
  Receive Date: 20221103
  Receipt Date: 20221109
  Transmission Date: 20230113
  Serious: Yes (Other)
  Sender: FDA-Public Use
  Company Number: DE-PFIZER INC-PV202200090694

PATIENT
  Age: 59 Year
  Sex: Male

DRUGS (4)
  1. LUTETIUM OXODOTREOTIDE LU-177 [Interacting]
     Active Substance: LUTETIUM OXODOTREOTIDE LU-177
     Indication: Pancreatic neuroendocrine tumour metastatic
     Dosage: UNK (1ST CYCLE WITH AN ACTIVITY OF 7.4 GBQ)
     Route: 042
  2. LUTETIUM OXODOTREOTIDE LU-177 [Interacting]
     Active Substance: LUTETIUM OXODOTREOTIDE LU-177
     Indication: Metastases to liver
     Dosage: UNK (2ND CYCLE WITH AN ACTIVITY OF 7.4 GBQ)
     Route: 042
  3. LUTETIUM OXODOTREOTIDE LU-177 [Interacting]
     Active Substance: LUTETIUM OXODOTREOTIDE LU-177
     Indication: Metastases to bone
  4. LUTETIUM OXODOTREOTIDE LU-177 [Interacting]
     Active Substance: LUTETIUM OXODOTREOTIDE LU-177
     Indication: Metastases to lymph nodes

REACTIONS (4)
  - Radioisotope uptake increased [Recovered/Resolved]
  - Vaccination site reaction [Recovered/Resolved]
  - Drug interaction [Recovered/Resolved]
  - Product use in unapproved indication [Unknown]
